FAERS Safety Report 8221515 (Version 3)
Quarter: 2013Q2

REPORT INFORMATION
  Report Type: Report from Study
  Country: DE (occurrence: DE)
  Receive Date: 20111102
  Receipt Date: 20130424
  Transmission Date: 20140414
  Serious: Yes (Hospitalization)
  Sender: FDA-Public Use
  Company Number: DE-ROCHE-1006867

PATIENT
  Sex: Female
  Weight: 87 kg

DRUGS (5)
  1. BEVACIZUMAB [Suspect]
     Indication: COLON CANCER
     Route: 065
     Dates: start: 20110110, end: 20110321
  2. 5-FU [Concomitant]
     Indication: COLON CANCER
     Route: 065
     Dates: start: 20110110, end: 20110321
  3. OXALIPLATIN [Concomitant]
     Indication: COLON CANCER
     Route: 065
     Dates: start: 20110110, end: 20110321
  4. PANTOZOL [Concomitant]
     Indication: COLON CANCER
     Route: 048
     Dates: start: 20111019
  5. FOLINIC ACID [Concomitant]
     Indication: COLON CANCER
     Route: 065
     Dates: start: 20110110, end: 20110321

REACTIONS (5)
  - Gastroenteritis [Recovered/Resolved]
  - Dehydration [Recovered/Resolved]
  - Malignant neoplasm progression [Unknown]
  - Renal failure acute [Recovered/Resolved]
  - Hyponatraemia [Recovered/Resolved]
